FAERS Safety Report 5242242-1 (Version None)
Quarter: 2007Q1

REPORT INFORMATION
  Report Type: 
  Country: None (occurrence: None)
  Receive Date: 20070215
  Receipt Date: 20070215
  Transmission Date: 20070707
  Serious: Yes (Other)
  Sender: FDA-Public Use
  Company Number: None

PATIENT
  Age: 48 Year
  Sex: Male
  Weight: 62.5964 kg

DRUGS (1)
  1. LEVAQUIN IN DEXTROSE 5% [Suspect]
     Indication: PROSTATIC SPECIFIC ANTIGEN INCREASED
     Dosage: 500MG IV X1
     Route: 042
     Dates: start: 20070208

REACTIONS (1)
  - INFUSION SITE PAIN [None]
